FAERS Safety Report 9752796 (Version 1)
Quarter: 2013Q4

REPORT INFORMATION
  Report Type: Spontaneous
  Country: FR (occurrence: FR)
  Receive Date: 20131213
  Receipt Date: 20131213
  Transmission Date: 20140711
  Serious: Yes (Hospitalization, Other)
  Sender: FDA-Public Use
  Company Number: FR-TEVA-448096ISR

PATIENT
  Age: 15 Year
  Sex: Female

DRUGS (2)
  1. LEELOO [Suspect]
     Indication: ORAL CONTRACEPTION
     Dosage: 1 TABLET DAILY; 21 DAYS /28 DAYS
     Route: 048
     Dates: start: 201306
  2. GARDASIL [Suspect]
     Indication: PROPHYLAXIS
     Dosage: TOTAL OF 2 INJECTIONS
     Route: 030
     Dates: start: 20130523, end: 20130730

REACTIONS (8)
  - Arthritis [Recovering/Resolving]
  - Juvenile idiopathic arthritis [Recovering/Resolving]
  - Oedema [Recovering/Resolving]
  - Arthritis [Recovering/Resolving]
  - Polyarthritis [Recovering/Resolving]
  - Arthralgia [Recovering/Resolving]
  - Joint effusion [Recovering/Resolving]
  - Pain in jaw [Recovering/Resolving]
